FAERS Safety Report 5427352-8 (Version None)
Quarter: 2007Q3

REPORT INFORMATION
  Report Type: 
  Country: None (occurrence: None)
  Receive Date: 20070828
  Receipt Date: 20070824
  Transmission Date: 20080115
  Serious: Yes (Hospitalization)
  Sender: FDA-Public Use
  Company Number: AR-BRISTOL-MYERS SQUIBB COMPANY-13889274

PATIENT
  Age: 54 Year
  Sex: Female

DRUGS (4)
  1. ABATACEPT [Suspect]
     Indication: RHEUMATOID ARTHRITIS
     Route: 042
     Dates: start: 20040413
  2. METHOTREXATE TABS [Suspect]
     Indication: RHEUMATOID ARTHRITIS
     Route: 048
     Dates: start: 20010113
  3. FOLIC ACID [Concomitant]
     Dates: start: 19991101
  4. DICLOFENAC SODIUM [Concomitant]
     Dates: start: 20021121

REACTIONS (1)
  - PYREXIA [None]
